FAERS Safety Report 19120776 (Version 7)
Quarter: 2021Q3

REPORT INFORMATION
  Report Type: Report from Study
  Country: DE (occurrence: DE)
  Receive Date: 20210412
  Receipt Date: 20210805
  Transmission Date: 20211014
  Serious: Yes (Hospitalization, Other)
  Sender: FDA-Public Use
  Company Number: NVSC2021DE076198

PATIENT
  Age: 77 Year
  Sex: Male
  Weight: 93 kg

DRUGS (4)
  1. DABRAFENIB [Suspect]
     Active Substance: DABRAFENIB
     Dosage: 300 MG
     Route: 048
     Dates: start: 20210225
  2. TRAMETINIB [Suspect]
     Active Substance: TRAMETINIB
     Indication: MALIGNANT MELANOMA
     Dosage: 2 MG
     Route: 048
     Dates: start: 20210130, end: 20210225
  3. TRAMETINIB [Suspect]
     Active Substance: TRAMETINIB
     Dosage: 2 MG
     Route: 048
     Dates: start: 20210225
  4. DABRAFENIB [Suspect]
     Active Substance: DABRAFENIB
     Indication: MALIGNANT MELANOMA
     Dosage: 300 MG
     Route: 048
     Dates: start: 20210130, end: 20210225

REACTIONS (10)
  - Ureterolithiasis [Recovered/Resolved]
  - White blood cell count decreased [Recovered/Resolved]
  - Erythema [Recovered/Resolved]
  - Chromaturia [Unknown]
  - Ventricular arrhythmia [Recovered/Resolved]
  - Headache [Not Recovered/Not Resolved]
  - Renal pain [Unknown]
  - Renal colic [Not Recovered/Not Resolved]
  - Nephrolithiasis [Recovered/Resolved]
  - Platelet count decreased [Recovered/Resolved]

NARRATIVE: CASE EVENT DATE: 20210225
